FAERS Safety Report 20381086 (Version 2)
Quarter: 2022Q1

REPORT INFORMATION
  Report Type: Spontaneous
  Country: IT (occurrence: IT)
  Receive Date: 20220127
  Receipt Date: 20220208
  Transmission Date: 20220423
  Serious: Yes (Other)
  Sender: FDA-Public Use
  Company Number: IT-TEVA-2022-IT-2000978

PATIENT
  Age: 9 Month
  Sex: Female

DRUGS (5)
  1. CARBOPLATIN [Suspect]
     Active Substance: CARBOPLATIN
     Indication: Astrocytoma, low grade
     Dosage: PART OF SIOP LGG-2004 PROTOCOL WITH A CUMULATIVE DOSE OF 4950 MG/M2
     Route: 065
  2. CISPLATIN [Suspect]
     Active Substance: CISPLATIN
     Indication: Astrocytoma, low grade
     Dosage: 100 MG/M2, RECEIVED 12 CYCLES WITH A CUMULATIVE DOSE OF 1200 MG/M2, RECEIVED ALONG WITH ETOPOSIDE
     Route: 065
  3. ETOPOSIDE [Concomitant]
     Active Substance: ETOPOSIDE
     Indication: Astrocytoma, low grade
     Dosage: 300 MG/M2, RECEIVED 12 CYCLES ALONG WITH CISPLATIN
     Route: 065
  4. ETOPOSIDE [Concomitant]
     Active Substance: ETOPOSIDE
     Dosage: PART OF SIOP LGG-2004 PROTOCOL
     Route: 065
  5. VINCRISTINE [Concomitant]
     Active Substance: VINCRISTINE
     Indication: Astrocytoma, low grade
     Dosage: PART OF SIOP LGG-2004 PROTOCOL
     Route: 065

REACTIONS (4)
  - Myelosuppression [Unknown]
  - Neurosensory hypoacusis [Unknown]
  - Hypoacusis [Unknown]
  - Drug hypersensitivity [Unknown]
